FAERS Safety Report 13496099 (Version 1)
Quarter: 2017Q2

REPORT INFORMATION
  Report Type: Spontaneous
  Country: MX (occurrence: MX)
  Receive Date: 20170428
  Receipt Date: 20170428
  Transmission Date: 20170830
  Serious: Yes (Other)
  Sender: FDA-Public Use
  Company Number: MX-PFIZER INC-2017187869

PATIENT
  Age: 87 Year
  Sex: Male

DRUGS (2)
  1. ERANZ [Suspect]
     Active Substance: DONEPEZIL HYDROCHLORIDE
  2. LIPITOR [Suspect]
     Active Substance: ATORVASTATIN CALCIUM

REACTIONS (1)
  - Deafness [Not Recovered/Not Resolved]
